FAERS Safety Report 9177596 (Version 2)
Quarter: 2013Q2

REPORT INFORMATION
  Report Type: Spontaneous
  Country: US (occurrence: US)
  Receive Date: 20130321
  Receipt Date: 20130425
  Transmission Date: 20140414
  Serious: Yes (Other)
  Sender: FDA-Public Use
  Company Number: US-BAYER-2013-034084

PATIENT
  Age: 28 Year
  Sex: Female

DRUGS (3)
  1. MIRENA [Suspect]
     Indication: CONTRACEPTION
     Dosage: 20 MCG/24HR, CONT
     Route: 015
     Dates: start: 20120927, end: 20130314
  2. MIRENA [Suspect]
     Indication: MENORRHAGIA
  3. COUMADIN [Concomitant]
     Dosage: UNK

REACTIONS (2)
  - Vaginal haemorrhage [Recovered/Resolved]
  - Device expulsion [Recovered/Resolved]
